FAERS Safety Report 15841923 (Version 2)
Quarter: 2019Q1

REPORT INFORMATION
  Report Type: Spontaneous
  Country: PT (occurrence: PT)
  Receive Date: 20190118
  Receipt Date: 20190121
  Transmission Date: 20190417
  Serious: Yes (Hospitalization, Other)
  Sender: FDA-Public Use
  Company Number: PT-SAKK-2019SA011040AA

PATIENT
  Age: 81 Year
  Sex: Female

DRUGS (2)
  1. ENOXAPARIN SODIUM. [Suspect]
     Active Substance: ENOXAPARIN SODIUM
     Indication: CEREBELLAR INFARCTION
     Dosage: 80 MG, BID
  2. ENOXAPARIN SODIUM. [Suspect]
     Active Substance: ENOXAPARIN SODIUM
     Indication: ANTICOAGULANT THERAPY

REACTIONS (7)
  - Hypotension [Unknown]
  - Abdominal pain [Unknown]
  - Haemoglobin decreased [Recovered/Resolved]
  - Pelvic haematoma [Unknown]
  - Sinus arrest [Unknown]
  - Generalised tonic-clonic seizure [Unknown]
  - Intra-abdominal haematoma [Not Recovered/Not Resolved]
